FAERS Safety Report 4733194-9 (Version None)
Quarter: 2005Q3

REPORT INFORMATION
  Report Type: 
  Country: None (occurrence: None)
  Receive Date: 20050801
  Receipt Date: 20050720
  Transmission Date: 20060218
  Serious: Yes (Hospitalization)
  Sender: FDA-Public Use
  Company Number: 2005AL002846

PATIENT
  Age: 45 Year
  Sex: Male

DRUGS (8)
  1. SERAX [Suspect]
     Indication: ANXIETY
     Dosage: QD; PO
     Route: 048
     Dates: start: 20050413
  2. BUSPAR [Suspect]
     Indication: ANXIETY
     Dosage: 30 MG;QD; PO
     Route: 048
     Dates: start: 20050413
  3. EQUANIL [Suspect]
     Indication: ANXIETY
     Dosage: QD; PO
     Route: 048
     Dates: start: 20050413
  4. PHENOBARBITAL ({NULL}) [Suspect]
     Indication: EPILEPSY
     Dosage: QD; PO
     Route: 048
     Dates: start: 20050406
  5. TEGRETOL [Suspect]
     Indication: EPILEPSY
     Dosage: QD; PO
     Route: 048
     Dates: start: 19930101
  6. TIAPRIDAL ({NULL}) [Suspect]
     Dosage: QD; PO
     Route: 048
     Dates: start: 20030501, end: 20050414
  7. TIAPRIDAL ({NULL}) [Suspect]
     Dosage: QD; PO
     Route: 048
     Dates: start: 20050415
  8. PARKINANE [Concomitant]

REACTIONS (1)
  - GRAND MAL CONVULSION [None]
